FAERS Safety Report 8929262 (Version 1)
Quarter: 2012Q4

REPORT INFORMATION
  Report Type: Spontaneous
  Country: US (occurrence: None)
  Receive Date: 20121126
  Receipt Date: 20121126
  Transmission Date: 20130627
  Serious: Yes (Other)
  Sender: FDA-Public Use
  Company Number: None

PATIENT
  Age: 65 Year
  Sex: Male
  Weight: 82.56 kg

DRUGS (1)
  1. GEMFIBROZIL [Suspect]
     Indication: CHOLESTEROL
     Route: 048
     Dates: start: 201208, end: 201210

REACTIONS (2)
  - Pain [None]
  - Pain in extremity [None]
